FAERS Safety Report 9303031 (Version 2)
Quarter: 2013Q2

REPORT INFORMATION
  Report Type: Spontaneous
  Country: JP (occurrence: JP)
  Receive Date: 20130522
  Receipt Date: 20130604
  Transmission Date: 20140414
  Serious: Yes (Hospitalization)
  Sender: FDA-Public Use
  Company Number: JP-B.I. PHARMACEUTICALS,INC./RIDGEFIELD-2013-BI-13059NB

PATIENT
  Age: 80 Year
  Sex: Female

DRUGS (1)
  1. MIRAPEX LA [Suspect]
     Indication: TREMOR
     Dosage: 3 MG
     Route: 048

REACTIONS (1)
  - Asthma [Recovered/Resolved]
